FAERS Safety Report 4915259-1 (Version None)
Quarter: 2006Q1

REPORT INFORMATION
  Report Type: 
  Country: None (occurrence: None)
  Receive Date: 20060216
  Receipt Date: 20060216
  Transmission Date: 20060701
  Serious: Yes (Hospitalization)
  Sender: FDA-Public Use
  Company Number: None

PATIENT
  Sex: Female

DRUGS (9)
  1. COUMADIN [Suspect]
     Indication: DEEP VEIN THROMBOSIS
     Dosage: PO    PRIOR TO ADMISSION
     Route: 048
  2. LASIX [Concomitant]
  3. IMDUR [Concomitant]
  4. NORVASC [Concomitant]
  5. ATENOLOL [Concomitant]
  6. COLACE [Concomitant]
  7. TYLENOL [Concomitant]
  8. MOM [Concomitant]
  9. ALBUTEROL [Concomitant]

REACTIONS (2)
  - COAGULOPATHY [None]
  - GASTROINTESTINAL HAEMORRHAGE [None]
